FAERS Safety Report 6076312-5 (Version None)
Quarter: 2009Q1

REPORT INFORMATION
  Report Type: 
  Country: None (occurrence: None)
  Receive Date: 20090209
  Receipt Date: 20090128
  Transmission Date: 20090719
  Serious: Yes (Hospitalization)
  Sender: FDA-Public Use
  Company Number: 340003K09USA

PATIENT
  Age: 36 Year
  Sex: Female
  Weight: 49 kg

DRUGS (1)
  1. OVIDREL [Suspect]
     Indication: INFERTILITY FEMALE
     Dosage: 250 MCG
     Dates: start: 20081201

REACTIONS (3)
  - DEPRESSION [None]
  - EMOTIONAL DISORDER [None]
  - HORMONE LEVEL ABNORMAL [None]
